FAERS Safety Report 10565514 (Version 1)
Quarter: 2014Q4

REPORT INFORMATION
  Report Type: Spontaneous
  Country: US (occurrence: US)
  Receive Date: 20141105
  Receipt Date: 20141105
  Transmission Date: 20150529
  Serious: No
  Sender: FDA-Public Use
  Company Number: US-PFIZER INC-2014304123

PATIENT
  Age: 49 Year
  Sex: Female

DRUGS (2)
  1. EFFEXOR [Suspect]
     Active Substance: VENLAFAXINE HYDROCHLORIDE
     Indication: DEPRESSION
     Dosage: UNK
  2. XANAX [Concomitant]
     Active Substance: ALPRAZOLAM
     Dosage: UNK

REACTIONS (1)
  - Anorgasmia [Unknown]
